FAERS Safety Report 8819233 (Version 1)
Quarter: 2012Q4

REPORT INFORMATION
  Report Type: Spontaneous
  Country: US (occurrence: None)
  Receive Date: 20121004
  Receipt Date: 20121004
  Transmission Date: 20130627
  Serious: Yes (Hospitalization)
  Sender: FDA-Public Use
  Company Number: None

PATIENT
  Age: 87 Year
  Sex: Male
  Weight: 65.3 kg

DRUGS (13)
  1. OFATUMUMAB [Suspect]
     Indication: CHRONIC LYMPHOCYTIC LEUKEMIA
     Dosage: 1000mg, q28d, IV
     Route: 042
     Dates: start: 20120409
  2. ALEMTUZUMAB [Suspect]
     Indication: CHRONIC LYMPHOCYTIC LEUKEMIA
     Route: 058
     Dates: start: 20120918
  3. OMEPRAZOLE [Concomitant]
  4. ACYCLOVIR [Concomitant]
  5. ASPIRIN ENTERIC COATED (ECOTRIN) [Concomitant]
  6. ATOVAQUONE [Concomitant]
  7. BIMATOPROST (LUMIGAN) [Concomitant]
  8. CHOLECALCIFEROL (VITAMIN D3) [Concomitant]
  9. DORZOLAMIDE [Concomitant]
  10. FINASTERIDE (PROSCAR) [Concomitant]
  11. MULTIVITAMINS [Concomitant]
  12. POSACONAZOLE [Concomitant]
  13. TAMSULOSIN (FLOMAX) [Concomitant]

REACTIONS (6)
  - Pyrexia [None]
  - Haematocrit decreased [None]
  - Viral infection [None]
  - Gastroenteritis [None]
  - Abdominal pain [None]
  - Upper respiratory tract infection [None]
